FAERS Safety Report 5409480-6 (Version None)
Quarter: 2007Q3

REPORT INFORMATION
  Report Type: 
  Country: None (occurrence: None)
  Receive Date: 20070807
  Receipt Date: 20070807
  Transmission Date: 20080115
  Serious: Yes (Hospitalization)
  Sender: FDA-Public Use
  Company Number: None

PATIENT
  Age: 75 Year
  Sex: Male

DRUGS (1)
  1. ACETAMINOPHEN AND HYDROCODONE BITARTRATE [Suspect]
     Indication: PAIN
     Dosage: 1 - 10/500 TAB OTHER PO
     Route: 048
     Dates: start: 20070411, end: 20070415

REACTIONS (2)
  - FALL [None]
  - MENTAL STATUS CHANGES [None]
